FAERS Safety Report 21628468 (Version 4)
Quarter: 2023Q2

REPORT INFORMATION
  Report Type: Spontaneous
  Country: JP (occurrence: JP)
  Receive Date: 20221122
  Receipt Date: 20230516
  Transmission Date: 20230722
  Serious: Yes (Hospitalization, Other)
  Sender: FDA-Public Use
  Company Number: JP-OTSUKA-2022_052372

PATIENT
  Age: 70 Year
  Sex: Male

DRUGS (3)
  1. SAMSCA [Suspect]
     Active Substance: TOLVAPTAN
     Indication: Cardiac failure congestive
     Dosage: 15MG/DAY
     Route: 048
     Dates: start: 20221109, end: 20221115
  2. SAMSCA [Suspect]
     Active Substance: TOLVAPTAN
     Dosage: 7.5MG/DAY
     Route: 048
     Dates: start: 20221116, end: 20221117
  3. CARPERITIDE [Concomitant]
     Active Substance: CARPERITIDE
     Indication: Product used for unknown indication
     Dosage: 2V/DAY
     Route: 065
     Dates: start: 20221109, end: 20221116

REACTIONS (1)
  - Diabetes insipidus [Recovered/Resolved]

NARRATIVE: CASE EVENT DATE: 20221109
